FAERS Safety Report 6736846-4 (Version None)
Quarter: 2010Q2

REPORT INFORMATION
  Report Type: 
  Country: None (occurrence: None)
  Receive Date: 20100521
  Receipt Date: 20100511
  Transmission Date: 20101027
  Serious: Yes (Other)
  Sender: FDA-Public Use
  Company Number: US-BAYER-200828051NA

PATIENT
  Age: 76 Year
  Sex: Male
  Weight: 80 kg

DRUGS (38)
  1. MAGNEVIST [Suspect]
     Indication: NUCLEAR MAGNETIC RESONANCE IMAGING BRAIN
     Dates: start: 19970808, end: 19970808
  2. OMNISCAN [Suspect]
     Indication: NUCLEAR MAGNETIC RESONANCE IMAGING ABDOMINAL
     Dosage: AS USED: 20 ML
     Dates: start: 20000104, end: 20000104
  3. OMNISCAN [Suspect]
     Dosage: AS USED: 30 ML
     Dates: start: 20000906, end: 20000906
  4. OMNISCAN [Suspect]
     Dosage: AS USED: 20 ML
     Dates: start: 20030103, end: 20030103
  5. OMNISCAN [Suspect]
     Dosage: AS USED: 20 ML
     Dates: start: 20021009, end: 20021009
  6. OMNISCAN [Suspect]
     Dosage: AS USED: 20 ML
     Dates: start: 20010907, end: 20010907
  7. OMNISCAN [Suspect]
     Dosage: AS USED: 20  ML
     Dates: start: 20040417, end: 20040417
  8. OPTIMARK [Suspect]
     Indication: NUCLEAR MAGNETIC RESONANCE IMAGING
  9. MULTIHANCE [Suspect]
     Indication: NUCLEAR MAGNETIC RESONANCE IMAGING
  10. PROHANCE [Suspect]
     Indication: NUCLEAR MAGNETIC RESONANCE IMAGING
  11. UNSPECIFIED GBCA [Suspect]
     Indication: NUCLEAR MAGNETIC RESONANCE IMAGING
     Dates: start: 19990315, end: 19990315
  12. UNSPECIFIED GBCA [Suspect]
     Dates: start: 19980218, end: 19980218
  13. UNSPECIFIED GBCA [Suspect]
     Dates: start: 19970708, end: 19970708
  14. UNSPECIFIED GBCA [Suspect]
     Dates: start: 19970528, end: 19970528
  15. EPOGEN [Concomitant]
     Dosage: DOSE-^4000^; START DATES 2000, 2006, 2007
  16. NEURONTIN [Concomitant]
     Dosage: 2005-2007
  17. ADVAIR DISKUS 100/50 [Concomitant]
     Indication: CHRONIC OBSTRUCTIVE PULMONARY DISEASE
     Dates: start: 20070101
  18. ALBUTEROL SULATE [Concomitant]
  19. AMIODARONE [Concomitant]
     Indication: HEART RATE IRREGULAR
  20. ARANESP [Concomitant]
     Indication: ANAEMIA
  21. CLONIDINE [Concomitant]
     Indication: HYPERTENSION
  22. COUMADIN [Concomitant]
  23. LASIX [Concomitant]
  24. HEPARIN [Concomitant]
     Indication: THROMBOSIS PROPHYLAXIS
     Dates: start: 20000101
  25. LIPITOR [Concomitant]
     Dosage: 2000-2001, 2004-2005
  26. LOSARTAN POTASSIUM [Concomitant]
     Indication: HYPERTENSION
  27. LYRICA [Concomitant]
     Indication: PAIN IN EXTREMITY
     Dosage: 2005-2007
  28. RENAGEL [Concomitant]
     Dosage: TOTAL DAILY DOSE: 2400 MG
  29. SYNTHROID [Concomitant]
     Dosage: 2004-2007
  30. FERROUS SULFATE TAB [Concomitant]
     Dosage: 2004, 2005
  31. POTASSIUM CHLORIDE [Concomitant]
     Dates: start: 20050101
  32. PREDNISONE [Concomitant]
     Indication: IMMUNOSUPPRESSION
     Dosage: 2000, 2001, 2002, 2004, 2005
  33. PHOSLO [Concomitant]
     Dates: start: 20000101
  34. CELLCEPT [Concomitant]
     Indication: IMMUNOSUPPRESSION
     Dosage: 2000, 2001
  35. CHEMOTHERAPY [Concomitant]
  36. RITUXIMAB [Concomitant]
     Indication: GLOMERULONEPHRITIS MEMBRANOUS
     Dates: start: 20030101
  37. CYTOVENE [Concomitant]
     Indication: CYTOMEGALOVIRUS INFECTION
     Dates: start: 20000101, end: 20010101
  38. ZOLOFT [Concomitant]
     Indication: DEPRESSION
     Dates: start: 20070101

REACTIONS (15)
  - ANXIETY [None]
  - ARTHRALGIA [None]
  - BURNING SENSATION [None]
  - EMOTIONAL DISTRESS [None]
  - FIBROSIS [None]
  - INJURY [None]
  - JOINT RANGE OF MOTION DECREASED [None]
  - MOBILITY DECREASED [None]
  - NEPHROGENIC SYSTEMIC FIBROSIS [None]
  - OEDEMA PERIPHERAL [None]
  - PAIN [None]
  - PAIN IN EXTREMITY [None]
  - SKIN ATROPHY [None]
  - SKIN HYPERTROPHY [None]
  - SKIN LESION [None]
